FAERS Safety Report 9370885 (Version 1)
Quarter: 2013Q2

REPORT INFORMATION
  Report Type: Report from Study
  Country: BE (occurrence: BE)
  Receive Date: 20130626
  Receipt Date: 20130626
  Transmission Date: 20140414
  Serious: Yes (Other)
  Sender: FDA-Public Use
  Company Number: BE-BRISTOL-MYERS SQUIBB COMPANY-19051051

PATIENT
  Age: 47 Year
  Sex: Female

DRUGS (1)
  1. MITOTANE [Suspect]
     Indication: ADRENAL GLAND CANCER
     Dosage: TABS?DOSE REDUCED-1.25G

REACTIONS (3)
  - Nausea [Recovered/Resolved]
  - Headache [Recovered/Resolved]
  - Vertigo [Recovered/Resolved]
